FAERS Safety Report 9483530 (Version 1)
Quarter: 2013Q3

REPORT INFORMATION
  Report Type: Spontaneous
  Country: US (occurrence: US)
  Receive Date: 20130828
  Receipt Date: 20130828
  Transmission Date: 20140515
  Serious: Yes (Death)
  Sender: FDA-Public Use
  Company Number: US-AMGEN-KDL278400

PATIENT
  Age: 62 Year
  Sex: Female

DRUGS (1)
  1. PROCRIT [Suspect]
     Indication: RENAL FAILURE CHRONIC
     Dosage: 20000 IU, QWK
     Route: 065
     Dates: start: 20070108

REACTIONS (1)
  - Lung adenocarcinoma [Fatal]
